FAERS Safety Report 16292707 (Version 3)
Quarter: 2019Q2

REPORT INFORMATION
  Report Type: Report from Study
  Country: FR (occurrence: FR)
  Receive Date: 20190509
  Receipt Date: 20190604
  Transmission Date: 20190711
  Serious: Yes (Death, Other)
  Sender: FDA-Public Use
  Company Number: FR-JAZZ-2019-FR-006412

PATIENT

DRUGS (15)
  1. IMOVANE [Concomitant]
     Active Substance: ZOPICLONE
     Indication: INSOMNIA
     Dosage: 3.75 MG, UNK
     Dates: start: 20150927, end: 201601
  2. NOVONORM [Concomitant]
     Active Substance: REPAGLINIDE
     Indication: DIABETES MELLITUS
     Dosage: 3 G, UNK
     Dates: start: 20151129, end: 201601
  3. DEFITELIO [Suspect]
     Active Substance: DEFIBROTIDE SODIUM
     Indication: VENOOCCLUSIVE DISEASE
     Dosage: 25 MG/KG, QD
     Dates: start: 20151103, end: 20151123
  4. URSOLVAN [Concomitant]
     Active Substance: URSODIOL
     Indication: GRAFT VERSUS HOST DISEASE
     Dosage: 6 SACHETS
     Route: 048
     Dates: start: 20151104, end: 201601
  5. VANCOMYCIN [Concomitant]
     Active Substance: VANCOMYCIN
     Indication: INFECTION PROPHYLAXIS
     Dosage: 2 G, UNK
     Dates: start: 20151103, end: 20151106
  6. AMOXICILLIN. [Concomitant]
     Active Substance: AMOXICILLIN
     Indication: PYREXIA
     Dosage: 2 G, UNK
     Dates: start: 20151125, end: 201601
  7. AMPHOTERICIN B. [Concomitant]
     Active Substance: AMPHOTERICIN B
     Indication: ANTIFUNGAL PROPHYLAXIS
     Dosage: 140 MG, UNK
     Route: 048
     Dates: start: 20151028, end: 20151109
  8. DEFITELIO [Suspect]
     Active Substance: DEFIBROTIDE SODIUM
     Dosage: 12.5 MG/KG, QD
     Dates: start: 20151124, end: 20151205
  9. CIPROFLOXACIN. [Concomitant]
     Active Substance: CIPROFLOXACIN
     Indication: PYREXIA
     Dosage: 100 MG, UNK
     Dates: start: 20151105, end: 20151115
  10. VFEND [Concomitant]
     Active Substance: VORICONAZOLE
     Indication: PYREXIA
     Dosage: 560 MG, UNK
     Dates: start: 20151105, end: 20151112
  11. ZELITREX [Concomitant]
     Active Substance: VALACYCLOVIR HYDROCHLORIDE
     Indication: PROPHYLAXIS
     Dosage: 1 G, UNK
     Dates: start: 20150905, end: 201601
  12. TARGOCID [Concomitant]
     Active Substance: TEICOPLANIN
     Indication: PYREXIA
     Dosage: 800 MG, UNK
     Dates: start: 20151105, end: 20151119
  13. MERONEM [Concomitant]
     Active Substance: MEROPENEM
     Indication: PYREXIA
     Dosage: 3 G, UNK
     Dates: start: 20151105, end: 20151120
  14. SOLU-MEDROL [Concomitant]
     Active Substance: METHYLPREDNISOLONE SODIUM SUCCINATE
     Indication: GRAFT VERSUS HOST DISEASE
     Dosage: 140 MG, UNK
     Dates: start: 20151104, end: 20151206
  15. LANTUS [Concomitant]
     Active Substance: INSULIN GLARGINE
     Indication: DIABETES MELLITUS
     Dosage: 26 IU, UNK
     Route: 042
     Dates: start: 20151114, end: 201601

REACTIONS (5)
  - Epistaxis [Recovered/Resolved]
  - Blood blister [Recovered/Resolved]
  - Septic shock [Recovered/Resolved]
  - Multiple organ dysfunction syndrome [Fatal]
  - Puncture site haemorrhage [Recovered/Resolved]

NARRATIVE: CASE EVENT DATE: 20151104
